FAERS Safety Report 5808307-8 (Version None)
Quarter: 2008Q3

REPORT INFORMATION
  Report Type: 
  Country: None (occurrence: None)
  Receive Date: 20080709
  Receipt Date: 20080624
  Transmission Date: 20090109
  Serious: Yes (Hospitalization, Other)
  Sender: FDA-Public Use
  Company Number: 2006BI016484

PATIENT
  Age: 74 Year
  Sex: Female

DRUGS (1)
  1. AVONEX [Suspect]
     Indication: MULTIPLE SCLEROSIS
     Dosage: 30 UG;QW;IM, 30 UG;QW;IM
     Route: 030
     Dates: start: 19970101

REACTIONS (5)
  - CORONARY ARTERY OCCLUSION [None]
  - FOOT FRACTURE [None]
  - LUNG DISORDER [None]
  - SQUAMOUS CELL CARCINOMA OF SKIN [None]
  - VISUAL ACUITY REDUCED [None]
